FAERS Safety Report 11011643 (Version 2)
Quarter: 2015Q2

REPORT INFORMATION
  Report Type: Report from Study
  Country: CZ (occurrence: CZ)
  Receive Date: 20150410
  Receipt Date: 20150605
  Transmission Date: 20150821
  Serious: Yes (Hospitalization)
  Sender: FDA-Public Use
  Company Number: CZ-ASTRAZENECA-2015SE31084

PATIENT
  Age: 28337 Day
  Sex: Female

DRUGS (13)
  1. AZD6140 [Suspect]
     Active Substance: TICAGRELOR
     Indication: ISCHAEMIA
     Dosage: MAINTENANCE DOSE 90 MG TWO TIMES A DAY
     Route: 048
     Dates: start: 20150111
  2. HELICID [Concomitant]
  3. AGEN [Concomitant]
  4. GLUCOPHAGE [Concomitant]
     Active Substance: METFORMIN HYDROCHLORIDE
  5. PRESTARIUM NEO FORTE [Concomitant]
  6. BETALOC [Concomitant]
     Active Substance: METOPROLOL TARTRATE
  7. EUTHYROX [Concomitant]
     Active Substance: LEVOTHYROXINE SODIUM
  8. ROSUCARD [Concomitant]
  9. VEROSPIRON [Concomitant]
     Active Substance: SPIRONOLACTONE
     Dates: start: 20150115
  10. EBRANTIL [Concomitant]
     Active Substance: URAPIDIL
  11. TENAXUM [Concomitant]
     Active Substance: RILMENIDINE
  12. DOPEGYT [Concomitant]
     Active Substance: METHYLDOPA
     Dates: start: 20150112
  13. AZD6140 [Suspect]
     Active Substance: TICAGRELOR
     Indication: ISCHAEMIA
     Dosage: LOADING DOSE 180 MG
     Route: 048
     Dates: start: 20150110, end: 20150110

REACTIONS (1)
  - Dyspepsia [Recovered/Resolved]

NARRATIVE: CASE EVENT DATE: 20150330
